FAERS Safety Report 5912110-8 (Version None)
Quarter: 2008Q4

REPORT INFORMATION
  Report Type: 
  Country: None (occurrence: None)
  Receive Date: 20081008
  Receipt Date: 20080927
  Transmission Date: 20090506
  Serious: Yes (Other)
  Sender: FDA-Public Use
  Company Number: US-ROCHE-588510

PATIENT
  Sex: Female

DRUGS (2)
  1. PEGASYS [Suspect]
     Indication: HEPATITIS C
     Dosage: DOSING AMOUNT: 180 MCG
     Route: 065
     Dates: start: 20080926
  2. RIBAVIRIN [Suspect]
     Indication: HEPATITIS C
     Dosage: DOSE: 1000 MG DAILY IN DIVIDED DOSES.
     Route: 065
     Dates: start: 20080926

REACTIONS (4)
  - CHILLS [None]
  - DELIRIUM [None]
  - HEADACHE [None]
  - PYREXIA [None]
